FAERS Safety Report 23402773 (Version 1)
Quarter: 2024Q1

REPORT INFORMATION
  Report Type: Spontaneous
  Country: SE (occurrence: SE)
  Receive Date: 20240115
  Receipt Date: 20240115
  Transmission Date: 20240410
  Serious: Yes (Other)
  Sender: FDA-Public Use
  Company Number: None

PATIENT
  Age: 72 Year
  Sex: Male
  Weight: 110 kg

DRUGS (13)
  1. DAPTOMYCIN [Suspect]
     Active Substance: DAPTOMYCIN
     Dosage: 1050 MG ONCE A DAY.
     Route: 042
     Dates: start: 20230406
  2. OXYCODONE HYDROCHLORIDE [Concomitant]
     Active Substance: OXYCODONE HYDROCHLORIDE
     Dosage: 1VBMAX6/D
     Dates: start: 20230322
  3. CANDESARTAN [Concomitant]
     Active Substance: CANDESARTAN
     Dosage: 1X1TV
     Dates: start: 20220825
  4. OXYCONTIN [Concomitant]
     Active Substance: OXYCODONE HYDROCHLORIDE
     Dosage: 1X2TV
     Dates: start: 20230324, end: 20230511
  5. ALLOPURINOL [Concomitant]
     Active Substance: ALLOPURINOL
     Dosage: 1X1TV
     Dates: start: 20220825
  6. EZETIMIBE [Concomitant]
     Active Substance: EZETIMIBE
     Dosage: 1X1TV
     Dates: start: 20220825
  7. ACETAMINOPHEN [Concomitant]
     Active Substance: ACETAMINOPHEN
     Dosage: 2X4 TV
     Dates: start: 20220824
  8. ENOXAPARIN SODIUM [Concomitant]
     Active Substance: ENOXAPARIN SODIUM
     Dosage: 0.4KL20TV
     Dates: start: 20230322
  9. LAKTULOS MEDA [Concomitant]
     Dosage: 10-25X1TV
     Dates: start: 20230323
  10. OXAZEPAM [Concomitant]
     Active Substance: OXAZEPAM
     Dosage: 1VBMAX3/D
     Dates: start: 20230109
  11. ELIQUIS [Concomitant]
     Active Substance: APIXABAN
     Dosage: 1X2TV
     Dates: start: 20220826
  12. NITROLINGUAL [Concomitant]
     Active Substance: NITROGLYCERIN
     Dosage: 1-2 VBTV
     Dates: start: 20220824
  13. REPATHA [Concomitant]
     Active Substance: EVOLOCUMAB
     Dosage: 1VBTV
     Dates: start: 20220824

REACTIONS (2)
  - Productive cough [Recovering/Resolving]
  - Pulmonary eosinophilia [Recovering/Resolving]

NARRATIVE: CASE EVENT DATE: 20230101
